FAERS Safety Report 5951726-X (Version None)
Quarter: 2008Q4

REPORT INFORMATION
  Report Type: 
  Country: None (occurrence: None)
  Receive Date: 20081113
  Receipt Date: 20081106
  Transmission Date: 20090506
  Serious: Yes (Death, Hospitalization, Other)
  Sender: FDA-Public Use
  Company Number: BR-ABBOTT-08P-020-0481113-00

PATIENT
  Sex: Female

DRUGS (2)
  1. HUMIRA [Suspect]
     Indication: RHEUMATOID ARTHRITIS
     Route: 058
     Dates: start: 20080219
  2. UNKNOWN [Concomitant]
     Indication: RHEUMATOID ARTHRITIS

REACTIONS (8)
  - COUGH [None]
  - DYSPNOEA [None]
  - FATIGUE [None]
  - INFLAMMATION [None]
  - MALAISE [None]
  - NODAL OSTEOARTHRITIS [None]
  - PULMONARY FIBROSIS [None]
  - RHEUMATOID ARTHRITIS [None]
